FAERS Safety Report 8374630-9 (Version None)
Quarter: 2012Q2

REPORT INFORMATION
  Report Type: 
  Country: None (occurrence: None)
  Receive Date: 20120521
  Receipt Date: 20110506
  Transmission Date: 20120825
  Serious: No
  Sender: FDA-Public Use
  Company Number: US-ASTRAZENECA-2011SE27810

PATIENT
  Sex: Male

DRUGS (3)
  1. TOPROL-XL [Concomitant]
     Dosage: UNKNOWN
  2. FUROSEMIX [Concomitant]
     Dosage: UNKNOWN
  3. PRILOSEC OTC [Suspect]
     Route: 048
     Dates: start: 20110501

REACTIONS (2)
  - INCORRECT DRUG ADMINISTRATION DURATION [None]
  - NAUSEA [None]
